FAERS Safety Report 8090875-X (Version None)
Quarter: 2012Q1

REPORT INFORMATION
  Report Type: 
  Country: None (occurrence: None)
  Receive Date: 20120131
  Receipt Date: 20120130
  Transmission Date: 20120608
  Serious: Yes (Life-Threatening, Hospitalization)
  Sender: FDA-Public Use
  Company Number: JP-JNJFOC-20110612987

PATIENT
  Age: 73 Year
  Sex: Female
  Weight: 49.81 kg

DRUGS (17)
  1. RABEPRAZOLE SODIUM [Concomitant]
  2. JANUVIA [Concomitant]
  3. REMICADE [Suspect]
     Indication: PRODUCT USED FOR UNKNOWN INDICATION
     Route: 042
     Dates: start: 20090201
  4. CELECOXIB [Concomitant]
  5. ETANERCEPT [Suspect]
     Route: 050
     Dates: start: 20100419, end: 20110116
  6. METFORMIN HCL [Concomitant]
  7. PROGRAF [Concomitant]
     Dates: start: 20100628, end: 20101024
  8. TRIMETHOPRIM [Concomitant]
  9. ACTONEL [Concomitant]
  10. ETANERCEPT [Suspect]
     Route: 050
     Dates: start: 20071001
  11. BASEN [Concomitant]
  12. ETANERCEPT [Suspect]
     Indication: RHEUMATOID ARTHRITIS
     Route: 050
     Dates: start: 20110117, end: 20110425
  13. PREDNISOLONE [Concomitant]
     Dates: start: 20100419
  14. SULFASALAZINE [Concomitant]
     Dates: start: 20101206, end: 20110125
  15. BREDININ [Concomitant]
     Dates: start: 20110126, end: 20110516
  16. MUCOSTA [Concomitant]
  17. SULFAMETHOXAZOLE [Concomitant]

REACTIONS (1)
  - PANCREATIC CARCINOMA [None]
